FAERS Safety Report 8810816 (Version 1)
Quarter: 2012Q4

REPORT INFORMATION
  Report Type: Report from Study
  Country: CA (occurrence: CA)
  Receive Date: 20120927
  Receipt Date: 20120927
  Transmission Date: 20130627
  Serious: Yes (Hospitalization)
  Sender: FDA-Public Use
  Company Number: CA-JNJFOC-20120908234

PATIENT
  Age: 55 Year
  Sex: Female
  Weight: 104 kg

DRUGS (26)
  1. REMICADE [Suspect]
     Indication: CROHN^S DISEASE
     Route: 042
     Dates: start: 20120131
  2. REMICADE [Suspect]
     Indication: CROHN^S DISEASE
     Route: 042
     Dates: start: 20080216
  3. ACETAMINOPHEN [Concomitant]
     Dosage: 1 to 2 tablets once 4-6 hours for 7 days as needed
     Route: 065
  4. ALENDRONATE [Concomitant]
     Dosage: in morning half an houe before food or medication with 250 mL water
     Route: 065
  5. ASAPHEN [Concomitant]
     Dosage: with breakfast
     Route: 065
  6. ATORVASTATIN [Concomitant]
     Route: 065
  7. BACTROBAN [Concomitant]
     Dosage: one topical application on leisions three times for 10 days
     Route: 061
  8. CAL 500 [Concomitant]
     Dosage: at breakfast and supper
     Route: 065
  9. CITALOPRAM [Concomitant]
     Route: 065
  10. CLOTRIMADERM [Concomitant]
     Dosage: one topical application on leisions twice AM and PM X10 days
     Route: 061
  11. DOMPERIDONE [Concomitant]
     Route: 065
  12. ELOCOM [Concomitant]
     Dosage: one application on lesions (thin layer) at bedtime X 1 week
     Route: 061
  13. EURO D [Concomitant]
     Dosage: 400 units
     Route: 065
  14. FLOVENT [Concomitant]
     Dosage: 1 to 2 puffs twice daily AM and PM as needed (rinse mouth after use)
     Route: 055
  15. GLICLAZIDE [Concomitant]
     Dosage: 2 tablets AM and 1 with supper
     Route: 065
  16. FERROUS SULFATE [Concomitant]
     Route: 065
  17. LOPERAMIDE [Concomitant]
     Indication: DIARRHOEA
     Dosage: 1 to 2 tablets if diarrhea (max 8 tablets per day)
     Route: 065
  18. SALBUTAMOL [Concomitant]
     Dosage: 1 to 2 puffs four times daily if needed
     Route: 065
  19. NOVO-SPIROTON [Concomitant]
     Route: 065
  20. GABAPENTINE [Concomitant]
     Dosage: every 8 hours
     Route: 065
  21. PIOGLITAZONE [Concomitant]
     Dosage: with breakfast
     Route: 065
  22. SALOFALK [Concomitant]
     Route: 065
  23. SYNTHROID [Concomitant]
     Dosage: AN
     Route: 065
  24. TRAZODONE [Concomitant]
     Dosage: 30 minutes before bed
     Route: 065
  25. HYDERM CREAM [Concomitant]
     Dosage: one topical application on lesions twice daily as needed
     Route: 061
  26. HYDROCHLOROTHIAZIDE [Concomitant]
     Dosage: AM and PM
     Route: 065

REACTIONS (2)
  - Cellulitis [Recovered/Resolved]
  - Arthropod bite [Recovered/Resolved]
